FAERS Safety Report 10650658 (Version 2)
Quarter: 2014Q4

REPORT INFORMATION
  Report Type: Spontaneous
  Country: US (occurrence: US)
  Receive Date: 20141214
  Receipt Date: 20141214
  Transmission Date: 20150529
  Serious: No
  Sender: FDA-Public Use
  Company Number: US-BAUSCH-SYM-2014-21293

PATIENT
  Age: 47 Year
  Sex: Male

DRUGS (2)
  1. XENAZINE [Suspect]
     Active Substance: TETRABENAZINE
     Indication: HUNTINGTON^S DISEASE
     Dosage: 1 TABLETS, THREE TIMES DAILY
     Route: 048
     Dates: start: 20140418, end: 20140519
  2. XENAZINE [Suspect]
     Active Substance: TETRABENAZINE
     Dosage: HALF TABLET, THREE TIMES A DAY
     Route: 048
     Dates: start: 20140520

REACTIONS (4)
  - Nasopharyngitis [Unknown]
  - Medication error [Not Recovered/Not Resolved]
  - Oropharyngeal pain [Unknown]
  - Asthenia [Unknown]

NARRATIVE: CASE EVENT DATE: 2014
